FAERS Safety Report 4644074-1 (Version None)
Quarter: 2005Q2

REPORT INFORMATION
  Report Type: 
  Country: None (occurrence: None)
  Receive Date: 20050425
  Receipt Date: 20050419
  Transmission Date: 20051028
  Serious: Yes (Hospitalization)
  Sender: FDA-Public Use
  Company Number: US-ROCHE-402552

PATIENT
  Sex: Female

DRUGS (2)
  1. XELODA [Suspect]
     Route: 048
     Dates: start: 20040615
  2. COUMADIN [Interacting]
     Route: 048

REACTIONS (2)
  - DRUG INTERACTION [None]
  - UROGENITAL HAEMORRHAGE [None]
